FAERS Safety Report 8208904-9 (Version None)
Quarter: 2012Q1

REPORT INFORMATION
  Report Type: 
  Country: None (occurrence: None)
  Receive Date: 20120314
  Receipt Date: 20120306
  Transmission Date: 20120608
  Serious: Yes (Other)
  Sender: FDA-Public Use
  Company Number: ES-VERTEX PHARMACEUTICALS INC.-000000000000000335

PATIENT
  Sex: Female

DRUGS (3)
  1. TELAPREVIR [Suspect]
     Indication: HEPATITIS C
     Dosage: DOSAGE FORM: TABLET
     Route: 048
     Dates: end: 20120306
  2. PEGINTERFERON ALFA-2A [Concomitant]
  3. RIBAVIRIN [Concomitant]

REACTIONS (1)
  - SKIN REACTION [None]
